FAERS Safety Report 5761112 (Version 12)
Quarter: 2021Q3

REPORT INFORMATION
  Report Type: Spontaneous
  Country: FR (occurrence: FR)
  Receive Date: 20050318
  Receipt Date: 20210927
  Transmission Date: 20211014
  Serious: Yes (Life-Threatening, Hospitalization, Disabling, Other)
  Sender: FDA-Public Use
  Company Number: PHRM2005FR01078

PATIENT
  Age: 23 Year
  Sex: Male
  Weight: 70 kg

DRUGS (9)
  1. RIVOTRIL [Concomitant]
     Active Substance: CLONAZEPAM
     Indication: PARTIAL SEIZURES
     Route: 065
  2. ASPEGIC [ACETYLSALICYLATE LYSINE] [Suspect]
     Active Substance: ASPIRIN DL-LYSINE
     Indication: INFLUENZA LIKE ILLNESS
     Route: 065
     Dates: start: 200502
  3. CLOBAZAM. [Concomitant]
     Active Substance: CLOBAZAM
     Indication: EPILEPSY
     Route: 065
  4. TRILEPTAL [Suspect]
     Active Substance: OXCARBAZEPINE
     Indication: PARTIAL SEIZURES
     Dosage: 600 MG, BID
     Route: 048
     Dates: start: 20050214, end: 20050221
  5. DEPAKINE CHRONO [Suspect]
     Active Substance: VALPROATE SODIUM
     Dosage: 1.5 G, QD
     Route: 065
     Dates: start: 20041124, end: 20050221
  6. TOPIRAMATE. [Concomitant]
     Active Substance: TOPIRAMATE
     Indication: EPILEPSY
     Route: 065
  7. LEVETIRACETAM. [Concomitant]
     Active Substance: LEVETIRACETAM
     Indication: EPILEPSY
     Route: 065
  8. DEPAKINE CHRONO [Suspect]
     Active Substance: VALPROATE SODIUM
     Indication: PARTIAL SEIZURES
     Dosage: 1 G, DAILY
     Route: 048
     Dates: start: 20041123, end: 20041123
  9. DEPAKINE [Suspect]
     Active Substance: VALPROATE SODIUM
     Indication: PARTIAL SEIZURES
     Dosage: 1.6 G, DAILY
     Route: 042
     Dates: end: 20041122

REACTIONS (44)
  - Blood creatine phosphokinase increased [Unknown]
  - Prothrombin time ratio decreased [Unknown]
  - Back pain [Unknown]
  - Mucosal disorder [Recovered/Resolved]
  - Acute respiratory distress syndrome [Recovered/Resolved]
  - Bone marrow failure [Recovering/Resolving]
  - Alopecia [Unknown]
  - Corneal opacity [Unknown]
  - Transaminases increased [Unknown]
  - Blood creatine phosphokinase MB increased [Unknown]
  - Respiratory disorder [Unknown]
  - Lithiasis [Unknown]
  - Acute kidney injury [Unknown]
  - Dermatitis bullous [Recovered/Resolved]
  - Skin exfoliation [Recovered/Resolved]
  - Ulcerative keratitis [Recovering/Resolving]
  - Gait disturbance [Unknown]
  - Thrombocytopenia [Unknown]
  - Symblepharon [Unknown]
  - Epilepsy [Unknown]
  - High density lipoprotein increased [Unknown]
  - Toxic epidermal necrolysis [Recovering/Resolving]
  - Dysphagia [Unknown]
  - Corneal neovascularisation [Unknown]
  - Cough [Unknown]
  - Asthenia [Unknown]
  - Iris adhesions [Unknown]
  - Heart rate decreased [Unknown]
  - Eye discharge [Unknown]
  - Nephrolithiasis [Unknown]
  - Renal colic [Unknown]
  - Urinary incontinence [Unknown]
  - Lymphadenopathy [Unknown]
  - C-reactive protein increased [Unknown]
  - Cataract [Unknown]
  - Urinary tract obstruction [Unknown]
  - Complication associated with device [Unknown]
  - Rash erythematous [Recovered/Resolved]
  - Scab [Unknown]
  - Pyrexia [Unknown]
  - Leukopenia [Unknown]
  - Visual acuity reduced [Recovering/Resolving]
  - Lacrimation decreased [Unknown]
  - Photophobia [Unknown]

NARRATIVE: CASE EVENT DATE: 2005
